FAERS Safety Report 5160348-2 (Version None)
Quarter: 2006Q4

REPORT INFORMATION
  Report Type: 
  Country: None (occurrence: None)
  Receive Date: 20061129
  Receipt Date: 20040901
  Transmission Date: 20070319
  Serious: Yes (Hospitalization, Disabling)
  Sender: FDA-Public Use
  Company Number: NO-SANOFI-SYNTHELABO-D01200403404

PATIENT
  Sex: Male
  Weight: 93 kg

DRUGS (4)
  1. CLOPIDOGREL [Suspect]
     Indication: ATRIAL FIBRILLATION
     Route: 048
     Dates: start: 20040813, end: 20040924
  2. CLOPIDOGREL [Suspect]
     Route: 048
     Dates: start: 20040929
  3. ASPIRIN [Concomitant]
     Indication: ATRIAL FIBRILLATION
     Dosage: 75 MG
     Route: 048
     Dates: start: 20040813
  4. IRBESARTAN/ PLACEBO [Suspect]
     Indication: ATRIAL FIBRILLATION
     Dosage: 150 MG/DAY FOR 2 WEEKS FOLLOWING BY 300 MG/DAY
     Route: 048
     Dates: start: 20040813

REACTIONS (2)
  - NEOPLASM PROGRESSION [None]
  - PROSTATIC ADENOMA [None]
